FAERS Safety Report 25562316 (Version 3)
Quarter: 2025Q3

REPORT INFORMATION
  Report Type: Spontaneous
  Country: JP (occurrence: JP)
  Receive Date: 20250716
  Receipt Date: 20250728
  Transmission Date: 20251020
  Serious: Yes (Life-Threatening)
  Sender: ROCHE
  Company Number: JP-ROCHE-10000081411

PATIENT
  Age: 49 Year
  Sex: Female
  Weight: 37 kg

DRUGS (17)
  1. RITUXAN [Suspect]
     Active Substance: RITUXIMAB
     Indication: Acquired haemophilia
     Route: 042
     Dates: start: 20240603, end: 20240624
  2. HEMLIBRA [Suspect]
     Active Substance: EMICIZUMAB-KXWH
     Indication: Acquired haemophilia
     Route: 058
     Dates: start: 20240702
  3. HEMLIBRA [Suspect]
     Active Substance: EMICIZUMAB-KXWH
     Route: 058
     Dates: start: 20240701
  4. HEMLIBRA [Suspect]
     Active Substance: EMICIZUMAB-KXWH
     Route: 058
     Dates: start: 20240708
  5. PREDONINE [Concomitant]
     Active Substance: PREDNISOLONE
     Indication: Acquired haemophilia
     Route: 042
     Dates: start: 20240527, end: 20240527
  6. PREDONINE [Concomitant]
     Active Substance: PREDNISOLONE
     Route: 042
     Dates: start: 20240528, end: 20240705
  7. MEDROL [Concomitant]
     Active Substance: METHYLPREDNISOLONE
     Dates: start: 20240706
  8. LANSOPRAZOLE [Concomitant]
     Active Substance: LANSOPRAZOLE
     Route: 048
  9. ELDECALCITOL [Concomitant]
     Active Substance: ELDECALCITOL
     Route: 048
     Dates: start: 20240704
  10. ACETAMINOPHEN [Concomitant]
     Active Substance: ACETAMINOPHEN
     Route: 065
     Dates: start: 20240706
  11. ATOVAQUONE [Concomitant]
     Active Substance: ATOVAQUONE
     Route: 048
     Dates: start: 20240801
  12. TORSEMIDE [Concomitant]
     Active Substance: TORSEMIDE
     Route: 048
  13. BONALON [Concomitant]
     Active Substance: ALENDRONATE SODIUM
     Route: 065
  14. SAMSCA [Concomitant]
     Active Substance: TOLVAPTAN
     Route: 048
     Dates: start: 20240718, end: 20240812
  15. METHYLPREDNISOLONE SODIUM SUCCINATE [Concomitant]
     Active Substance: METHYLPREDNISOLONE SODIUM SUCCINATE
     Route: 042
     Dates: start: 20240531, end: 20240602
  16. PREDNISOLONE [Concomitant]
     Active Substance: PREDNISOLONE
     Indication: Sjogren^s syndrome
     Route: 048
     Dates: start: 20231101, end: 20240527
  17. ACTEMRA [Concomitant]
     Active Substance: TOCILIZUMAB
     Route: 042
     Dates: start: 20240620

REACTIONS (7)
  - Off label use [Unknown]
  - Activated partial thromboplastin time prolonged [Not Recovered/Not Resolved]
  - Injury [Recovered/Resolved]
  - Extradural haematoma [Recovered/Resolved]
  - Skin exfoliation [Recovered/Resolved]
  - Subarachnoid haemorrhage [Recovered/Resolved]
  - Infusion related reaction [Unknown]

NARRATIVE: CASE EVENT DATE: 20240718
